FAERS Safety Report 6221113-8 (Version None)
Quarter: 2009Q2

REPORT INFORMATION
  Report Type: 
  Country: None (occurrence: None)
  Receive Date: 20090610
  Receipt Date: 20090603
  Transmission Date: 20091009
  Serious: Yes (Hospitalization)
  Sender: FDA-Public Use
  Company Number: B0577691A

PATIENT
  Sex: Male

DRUGS (2)
  1. RELENZA [Suspect]
     Indication: INFLUENZA
     Route: 055
     Dates: start: 20090101
  2. RELENZA [Suspect]
     Dosage: 10MG PER DAY
     Route: 055
     Dates: start: 20090601, end: 20090601

REACTIONS (2)
  - ABNORMAL BEHAVIOUR [None]
  - ELECTROENCEPHALOGRAM ABNORMAL [None]
